FAERS Safety Report 6420967-X (Version None)
Quarter: 2009Q4

REPORT INFORMATION
  Report Type: 
  Country: None (occurrence: None)
  Receive Date: 20091030
  Receipt Date: 20091021
  Transmission Date: 20100525
  Serious: Yes (Death)
  Sender: FDA-Public Use
  Company Number: US-ROCHE-651433

PATIENT
  Sex: Female
  Weight: 66.9 kg

DRUGS (2)
  1. TAMIFLU [Suspect]
     Route: 048
     Dates: start: 20090808, end: 20090811
  2. TAMIFLU [Suspect]
     Route: 048
     Dates: start: 20090806, end: 20090808

REACTIONS (4)
  - BRAIN DEATH [None]
  - BRAIN OEDEMA [None]
  - HYPERCOAGULATION [None]
  - INCORRECT DOSE ADMINISTERED [None]
